FAERS Safety Report 6274783-2 (Version None)
Quarter: 2009Q3

REPORT INFORMATION
  Report Type: 
  Country: None (occurrence: None)
  Receive Date: 20090721
  Receipt Date: 20070905
  Transmission Date: 20100115
  Serious: Yes (Hospitalization, Other)
  Sender: FDA-Public Use
  Company Number: US-ASTRAZENECA-2006UW03260

PATIENT
  Age: 47 Year
  Sex: Male
  Weight: 128.4 kg

DRUGS (52)
  1. SEROQUEL [Suspect]
     Indication: SCHIZOPHRENIA
     Route: 048
     Dates: start: 20031101, end: 20050301
  2. SEROQUEL [Suspect]
     Dosage: STRENGTH 100 MG - 300 MG
     Route: 048
     Dates: start: 20031105
  3. ABILIFY [Concomitant]
     Route: 048
     Dates: start: 20050101
  4. CLOZARIL [Concomitant]
     Route: 048
     Dates: start: 19700101
  5. HALOPERIDOL [Concomitant]
     Dates: start: 19700101
  6. NAVANE [Concomitant]
     Route: 048
     Dates: start: 20000101
  7. RISPERDAL [Concomitant]
     Route: 048
     Dates: start: 20050101, end: 20060101
  8. STELAZINE [Concomitant]
     Route: 048
     Dates: start: 19700101
  9. THORAZINE [Concomitant]
     Dates: start: 19700101
  10. ZYPREXA [Concomitant]
     Route: 048
     Dates: start: 20030101, end: 20050101
  11. LOXAPINE [Concomitant]
     Route: 048
     Dates: start: 20000101
  12. ZOLOFT [Concomitant]
     Route: 048
     Dates: start: 20040112
  13. AMBIEN [Concomitant]
     Route: 048
     Dates: start: 20040112
  14. PREVACID [Concomitant]
     Route: 048
     Dates: start: 20040112
  15. ALBUTEROL [Concomitant]
     Dosage: 90 MCG - 0.83 MG
     Dates: start: 20030908
  16. ALBUTEROL [Concomitant]
     Dates: start: 20040112
  17. SENNA [Concomitant]
     Route: 048
     Dates: start: 20040112
  18. HYDROXYZINE [Concomitant]
     Route: 048
     Dates: start: 20040112
  19. TRIHEXYPHENIDYL [Concomitant]
     Route: 048
     Dates: start: 20040112
  20. METHOCARBAMOL [Concomitant]
     Route: 048
     Dates: start: 20040112
  21. LORAZEPAM [Concomitant]
     Route: 048
     Dates: start: 20040112
  22. NAPROXEN [Concomitant]
     Route: 048
     Dates: start: 20040209
  23. SPIRONOLACTONE [Concomitant]
     Route: 048
     Dates: start: 20040209
  24. TRAMADOL HCL [Concomitant]
     Route: 048
     Dates: start: 20040707
  25. CEPHALEXIN [Concomitant]
     Route: 048
     Dates: start: 20040707
  26. AVAPRO [Concomitant]
     Route: 048
     Dates: start: 20040707
  27. PROMETHAZINE [Concomitant]
     Route: 048
     Dates: start: 20040927
  28. AMOXICILLIN [Concomitant]
     Route: 048
     Dates: start: 20041220
  29. GABAPENTIN [Concomitant]
     Route: 048
     Dates: start: 20041230
  30. ALPRAZOLAM [Concomitant]
     Route: 048
     Dates: start: 20050120
  31. VIAGRA [Concomitant]
     Route: 048
     Dates: start: 20050120
  32. LIPITOR [Concomitant]
     Route: 048
     Dates: start: 20050120
  33. EFFEXOR XR [Concomitant]
     Route: 048
     Dates: start: 20050202
  34. LORATADINE [Concomitant]
     Route: 048
     Dates: start: 20050202
  35. ZOCOR [Concomitant]
     Route: 048
     Dates: start: 20050224
  36. FUROSEMIDE [Concomitant]
     Route: 048
     Dates: start: 20050713
  37. DIPHENOXYLATE [Concomitant]
     Route: 048
     Dates: start: 20050715
  38. METOCLOPRAMIDE [Concomitant]
     Route: 048
     Dates: start: 20050718
  39. SIMETHICONE [Concomitant]
  40. CITALOPRAM HYDROBROMIDE [Concomitant]
     Route: 048
     Dates: start: 20050824
  41. POTASSIUM CHLORIDE [Concomitant]
     Route: 048
     Dates: start: 20050805
  42. LISINOPRIL [Concomitant]
     Route: 048
     Dates: start: 20050824
  43. WELLBUTRIN [Concomitant]
     Dosage: 150 M
     Dates: start: 20030908
  44. ACTOS [Concomitant]
     Dosage: STRENGTH 15 MG - 30 MG
     Dates: start: 20030919
  45. AMARYL [Concomitant]
     Dosage: STRENGTH 1 MG - 2 MG
     Dates: start: 20030919
  46. FAMOTIDINE [Concomitant]
     Dates: start: 20030919
  47. DIAZEPAM [Concomitant]
     Dates: start: 20031105
  48. IBUPROFEN [Concomitant]
     Dates: start: 20050126
  49. LEXAPRO [Concomitant]
     Dates: start: 20050224
  50. RANITIDINE [Concomitant]
     Dates: start: 20050824
  51. OXYCODONE HCL AND ACETAMINOPHEN [Concomitant]
     Dosage: STRENGTH 5 MG /325 MG
     Dates: start: 20050605
  52. TRAMADOL HYDROCHLORIDE [Concomitant]
     Dates: start: 20050217

REACTIONS (7)
  - DIABETES MELLITUS [None]
  - DIABETES MELLITUS INADEQUATE CONTROL [None]
  - DIABETIC NEUROPATHY [None]
  - HYPERGLYCAEMIA [None]
  - OBESITY [None]
  - TYPE 2 DIABETES MELLITUS [None]
  - WEIGHT INCREASED [None]
